FAERS Safety Report 4715626-5 (Version None)
Quarter: 2005Q3

REPORT INFORMATION
  Report Type: 
  Country: None (occurrence: None)
  Receive Date: 20050713
  Receipt Date: 20050630
  Transmission Date: 20060218
  Serious: Yes (Life-Threatening, Hospitalization)
  Sender: FDA-Public Use
  Company Number: 2005095875

PATIENT
  Age: 35 Year
  Sex: Female

DRUGS (5)
  1. HEPARIN SODIUM [Suspect]
     Indication: THROMBOSIS PROPHYLAXIS
     Dosage: 54000 I.U. ( 1 IN 1 D), SUBCUTANEOUS
     Route: 058
     Dates: start: 20050417, end: 20050519
  2. DEPAKOTE [Suspect]
     Indication: ILL-DEFINED DISORDER
     Dosage: 5000 MG (1  IN1 D ), ORAL
     Route: 048
     Dates: end: 20050519
  3. TRANXENE [Suspect]
     Indication: ILL-DEFINED DISORDER
     Dosage: 650 MG (1 IN 1 D)
     Dates: end: 20050519
  4. MEPRONIZINE (ACEPROMETAZINE , MEPROBAMATE) [Suspect]
     Indication: ILL-DEFINED DISORDER
     Dosage: 4100 MG (1 IN1 D), ORAL
     Route: 048
     Dates: end: 20050519
  5. OTHER THERAPEUTIC PRODUCTS (OTHER THERAPEUTIC PRODUCTS) [Concomitant]

REACTIONS (5)
  - COAGULOPATHY [None]
  - INTENTIONAL MISUSE [None]
  - MENISCUS OPERATION [None]
  - MULTIPLE DRUG OVERDOSE [None]
  - SUICIDE ATTEMPT [None]
